FAERS Safety Report 16787698 (Version 2)
Quarter: 2019Q4

REPORT INFORMATION
  Report Type: Report from Study
  Country: BE (occurrence: BE)
  Receive Date: 20190909
  Receipt Date: 20191015
  Transmission Date: 20200122
  Serious: Yes (Death, Hospitalization)
  Sender: FDA-Public Use
  Company Number: BE-EISAI MEDICAL RESEARCH-EC-2019-051966

PATIENT
  Age: 65 Year
  Sex: Female
  Weight: 56 kg

DRUGS (6)
  1. CARDIOASPIRIN [Concomitant]
     Active Substance: ASPIRIN
  2. LENVATINIB [Suspect]
     Active Substance: LENVATINIB
     Indication: THYROID CANCER
     Route: 048
     Dates: start: 20181109, end: 20190831
  3. BRILIQUE [Concomitant]
     Active Substance: TICAGRELOR
  4. ATORVASTATIN [Concomitant]
     Active Substance: ATORVASTATIN
  5. L-THYROXINE [Concomitant]
     Active Substance: LEVOTHYROXINE
  6. SIPRALEXA [Concomitant]
     Active Substance: ESCITALOPRAM OXALATE

REACTIONS (3)
  - Cardiac failure [Not Recovered/Not Resolved]
  - Myocardial infarction [Recovered/Resolved]
  - Respiratory distress [Fatal]

NARRATIVE: CASE EVENT DATE: 20190115
